FAERS Safety Report 6163583-X (Version None)
Quarter: 2009Q2

REPORT INFORMATION
  Report Type: 
  Country: None (occurrence: None)
  Receive Date: 20090422
  Receipt Date: 20090416
  Transmission Date: 20091009
  Serious: Yes (Other)
  Sender: FDA-Public Use
  Company Number: BE-ASTRAZENECA-2009AC01099

PATIENT
  Sex: Male

DRUGS (1)
  1. SYMBICORT FORTE [Suspect]

REACTIONS (2)
  - ARRHYTHMIA [None]
  - VENTRICULAR FIBRILLATION [None]
